FAERS Safety Report 5480951-X (Version None)
Quarter: 2007Q4

REPORT INFORMATION
  Report Type: 
  Country: None (occurrence: None)
  Receive Date: 20071004
  Receipt Date: 20070928
  Transmission Date: 20080405
  Serious: Yes (Other)
  Sender: FDA-Public Use
  Company Number: 2007SP019735

PATIENT
  Age: 78 Year
  Sex: Female

DRUGS (4)
  1. DIPROSONE SP (BETAMETHASONE DIPROPIONATE (TOPICAL)) (BETAMETHASONE DIP [Suspect]
     Indication: ALOPECIA
     Dates: start: 20070927
  2. ISOPTIN [Concomitant]
  3. KARDEGIC [Concomitant]
  4. ZOCOR [Concomitant]

REACTIONS (2)
  - ANGINA PECTORIS [None]
  - DYSPNOEA [None]
